FAERS Safety Report 10886564 (Version 3)
Quarter: 2015Q2

REPORT INFORMATION
  Report Type: Spontaneous
  Country: JP (occurrence: JP)
  Receive Date: 20150304
  Receipt Date: 20150413
  Transmission Date: 20150821
  Serious: Yes (Other)
  Sender: FDA-Public Use
  Company Number: JP-GLAXOSMITHKLINE-JP2015JPN025320

PATIENT
  Age: 45 Year
  Sex: Female

DRUGS (4)
  1. LAMICTAL [Suspect]
     Active Substance: LAMOTRIGINE
     Indication: BIPOLAR DISORDER
     Dosage: 25 MG, QD
     Route: 048
     Dates: start: 20140805
  2. LAMICTAL [Suspect]
     Active Substance: LAMOTRIGINE
     Dosage: 100 MG, QD
     Route: 048
     Dates: start: 201409
  3. HYTHIOL [Concomitant]
     Dosage: UNK
  4. LAMICTAL [Suspect]
     Active Substance: LAMOTRIGINE
     Dosage: 100 UNK, UNK
     Route: 048

REACTIONS (11)
  - Aspartate aminotransferase increased [Unknown]
  - Conjunctival hyperaemia [Unknown]
  - Drug eruption [Recovering/Resolving]
  - Oral mucosa erosion [Unknown]
  - Generalised erythema [Unknown]
  - Blood lactate dehydrogenase increased [Unknown]
  - Pyrexia [Recovering/Resolving]
  - Alanine aminotransferase increased [Unknown]
  - Lip erosion [Unknown]
  - Rash pruritic [Unknown]
  - Liver disorder [Unknown]

NARRATIVE: CASE EVENT DATE: 201409
